FAERS Safety Report 5115154-1 (Version None)
Quarter: 2006Q3

REPORT INFORMATION
  Report Type: 
  Country: None (occurrence: None)
  Receive Date: 20060926
  Receipt Date: 20060919
  Transmission Date: 20061208
  Serious: Yes (Hospitalization)
  Sender: FDA-Public Use
  Company Number: FR-SANOFI-SYNTHELABO-A02200602372

PATIENT
  Sex: Female

DRUGS (5)
  1. XELODA [Suspect]
     Indication: DRUG USE FOR UNKNOWN INDICATION
     Dates: start: 20060615, end: 20060629
  2. LORAZEPAM [Suspect]
     Indication: DRUG USE FOR UNKNOWN INDICATION
     Route: 048
     Dates: end: 20060629
  3. PLAVIX [Suspect]
     Indication: DRUG USE FOR UNKNOWN INDICATION
     Route: 048
     Dates: end: 20060627
  4. AROMASINE [Suspect]
     Route: 048
     Dates: start: 20060515
  5. LEVOTHYROXINE SODIUM [Suspect]
     Route: 048

REACTIONS (17)
  - ABDOMINAL PAIN UPPER [None]
  - BLOOD THYROID STIMULATING HORMONE INCREASED [None]
  - BLOOD UREA INCREASED [None]
  - CEREBROVASCULAR ACCIDENT [None]
  - CHOLESTASIS [None]
  - COUGH [None]
  - DECUBITUS ULCER [None]
  - DYSPNOEA [None]
  - ENCEPHALOPATHY [None]
  - LEUKOENCEPHALOPATHY [None]
  - LYMPHOPENIA [None]
  - OEDEMA PERIPHERAL [None]
  - PARANEOPLASTIC SYNDROME [None]
  - SERUM FERRITIN INCREASED [None]
  - STATUS EPILEPTICUS [None]
  - THYROXINE DECREASED [None]
  - VIRAL INFECTION [None]
